FAERS Safety Report 8376244-3 (Version None)
Quarter: 2012Q1

REPORT INFORMATION
  Report Type: 
  Country: None (occurrence: None)
  Receive Date: 20120323
  Receipt Date: 20110818
  Transmission Date: 20120608
  Serious: Yes (Other)
  Sender: FDA-Public Use
  Company Number: 163-21880-11073240

PATIENT
  Age: 84 Year
  Sex: Female

DRUGS (8)
  1. ASPIRIN [Concomitant]
  2. LABETALOL HCL (LABETALOL HYDROCHLORIDE) [Concomitant]
  3. DEXAMETHASONE [Concomitant]
  4. PREDNISONE TAB [Concomitant]
  5. DIGOXIN [Concomitant]
  6. PAMIDRONATE DISODIUM [Concomitant]
  7. REVLIMID [Suspect]
     Indication: MULTIPLE MYELOMA
     Dosage: 5 MG, 1 IN 1 D, PO 2.5 MG, 1 IN 2 D, PO
     Route: 048
     Dates: start: 20110801
  8. REVLIMID [Suspect]
     Indication: MULTIPLE MYELOMA
     Dosage: 5 MG, 1 IN 1 D, PO 2.5 MG, 1 IN 2 D, PO
     Route: 048
     Dates: start: 20110301

REACTIONS (3)
  - RASH PRURITIC [None]
  - HYPOACUSIS [None]
  - ATRIAL FIBRILLATION [None]
